FAERS Safety Report 9861533 (Version 1)
Quarter: 2014Q1

REPORT INFORMATION
  Report Type: Spontaneous
  Country: US (occurrence: US)
  Receive Date: 20140203
  Receipt Date: 20140203
  Transmission Date: 20141002
  Serious: No
  Sender: FDA-Public Use
  Company Number: US-BIOGENIDEC-2014BI009513

PATIENT
  Sex: Female

DRUGS (2)
  1. TYSABRI [Suspect]
     Indication: MULTIPLE SCLEROSIS
     Route: 042
     Dates: start: 20121212, end: 20130603
  2. AVONEX [Concomitant]
     Indication: MULTIPLE SCLEROSIS
     Route: 030
     Dates: start: 20040304

REACTIONS (6)
  - Localised infection [Unknown]
  - Mental impairment [Unknown]
  - Central nervous system lesion [Unknown]
  - Headache [Recovered/Resolved]
  - Herpes zoster [Recovered/Resolved]
  - Nasopharyngitis [Recovered/Resolved]
